FAERS Safety Report 25434439 (Version 1)
Quarter: 2025Q2

REPORT INFORMATION
  Report Type: Spontaneous
  Country: US (occurrence: US)
  Receive Date: 20250613
  Receipt Date: 20250613
  Transmission Date: 20250716
  Serious: No
  Sender: PFIZER
  Company Number: US-PFIZER INC-202500117894

PATIENT
  Age: 19 Year
  Sex: Female
  Weight: 70.31 kg

DRUGS (1)
  1. DEPO-PROVERA [Suspect]
     Active Substance: MEDROXYPROGESTERONE ACETATE
     Indication: Contraception
     Dosage: THREE FOURTH OF THE INJECTION (PRESCRIBED 150MG/ML)

REACTIONS (1)
  - Incorrect dose administered [Unknown]
